FAERS Safety Report 18869319 (Version 1)
Quarter: 2021Q1

REPORT INFORMATION
  Report Type: Spontaneous
  Country: US (occurrence: US)
  Receive Date: 20210210
  Receipt Date: 20210210
  Transmission Date: 20210420
  Serious: No
  Sender: FDA-Public Use
  Company Number: US-TEVA-2021-US-1875240

PATIENT

DRUGS (2)
  1. DOCETAXEL INJECTION CONCENTRATE [Suspect]
     Active Substance: DOCETAXEL
     Dates: start: 201306, end: 201405
  2. DOCEFREZ [Suspect]
     Active Substance: DOCETAXEL ANHYDROUS
     Route: 065

REACTIONS (3)
  - Alopecia [Unknown]
  - Madarosis [Unknown]
  - Alopecia areata [Unknown]
